FAERS Safety Report 7303869-6 (Version None)
Quarter: 2011Q1

REPORT INFORMATION
  Report Type: 
  Country: None (occurrence: None)
  Receive Date: 20110221
  Receipt Date: 20110207
  Transmission Date: 20110831
  Serious: Yes (Hospitalization)
  Sender: FDA-Public Use
  Company Number: B0648377B

PATIENT
  Sex: Female

DRUGS (1)
  1. PAZOPANIB [Suspect]
     Indication: SARCOMA
     Route: 048
     Dates: start: 20100119, end: 20100323

REACTIONS (1)
  - DYSPHAGIA [None]
